FAERS Safety Report 4367696-4 (Version None)
Quarter: 2004Q2

REPORT INFORMATION
  Report Type: 
  Country: None (occurrence: None)
  Receive Date: 20040526
  Receipt Date: 20031030
  Transmission Date: 20050107
  Serious: Yes (Life-Threatening, Hospitalization, Other)
  Sender: FDA-Public Use
  Company Number: USA030844577

PATIENT
  Age: 56 Year
  Sex: Female

DRUGS (7)
  1. ZYPREXA [Suspect]
     Indication: BIPOLAR DISORDER
     Dosage: 20 MG/AT BEDTIME
     Dates: start: 20030310, end: 20030807
  2. ZYPREXA [Suspect]
     Indication: DEMENTIA
     Dosage: 20 MG/AT BEDTIME
     Dates: start: 20030310, end: 20030807
  3. LITHIUM CARBONATE [Concomitant]
  4. DEPAKOTE [Concomitant]
  5. INDERAL [Concomitant]
  6. LASIX [Concomitant]
  7. POTASSIUM [Concomitant]

REACTIONS (1)
  - NEUROLEPTIC MALIGNANT SYNDROME [None]
